FAERS Safety Report 7511259-6 (Version None)
Quarter: 2011Q2

REPORT INFORMATION
  Report Type: 
  Country: None (occurrence: None)
  Receive Date: 20110531
  Receipt Date: 20110517
  Transmission Date: 20111010
  Serious: Yes (Hospitalization, Other)
  Sender: FDA-Public Use
  Company Number: US-BAYER-2011-026055

PATIENT
  Age: 33 Year
  Sex: Female
  Weight: 79.365 kg

DRUGS (4)
  1. MORPHINE [Concomitant]
  2. YASMIN [Suspect]
     Indication: ORAL CONTRACEPTION
     Dosage: UNK
     Route: 048
     Dates: start: 20051229, end: 20081001
  3. DROSPIRENONE AND ETHINYL ESTRADIOL [Suspect]
     Indication: ORAL CONTRACEPTION
     Dosage: UNK
     Dates: start: 20081023, end: 20100501
  4. PHENERGAN HCL [Concomitant]

REACTIONS (4)
  - PAIN [None]
  - VOMITING [None]
  - CHOLECYSTITIS CHRONIC [None]
  - BILIARY COLIC [None]
